FAERS Safety Report 8171380 (Version 10)
Quarter: 2014Q2

REPORT INFORMATION
  Report Type: Report from Study
  Country: US (occurrence: US)
  Receive Date: 20111006
  Receipt Date: 20140512
  Transmission Date: 20141212
  Serious: Yes (Hospitalization, Congenital Anomaly, Other)
  Sender: FDA-Public Use
  Company Number: US-PFIZER INC-2011231358

PATIENT
  Age: 4 Month
  Sex: Female

DRUGS (9)
  1. ENBREL [Suspect]
     Indication: PSORIATIC ARTHROPATHY
     Dosage: 50 MG, QWK
     Route: 064
     Dates: start: 20091230, end: 20100114
  2. ENBREL [Suspect]
     Indication: PSORIASIS
  3. ZITHROMAX [Suspect]
     Indication: EAR INFECTION
  4. PRENATAL VITAMINS [Concomitant]
     Dosage: UNK UNK, QD
     Route: 064
     Dates: start: 20091230, end: 20100825
  5. YAZ [Concomitant]
     Indication: CONTRACEPTION
     Dosage: UNK UNK, QD
     Route: 064
     Dates: start: 20091126, end: 20100112
  6. TYLENOL [Concomitant]
     Indication: PSORIATIC ARTHROPATHY
     Dosage: UNK UNK, PRN
     Route: 064
     Dates: start: 20100114, end: 20100430
  7. TYLENOL [Concomitant]
     Indication: HEADACHE
  8. FISH OIL [Concomitant]
     Dosage: UNK UNK, QD
     Route: 064
     Dates: start: 20100416, end: 20100825
  9. TERBUTALINE [Concomitant]
     Dosage: 30 MG, QD
     Route: 064
     Dates: start: 20100504, end: 20100825

REACTIONS (10)
  - Maternal exposure timing unspecified [Unknown]
  - Bronchomalacia [Unknown]
  - Cyanosis [Unknown]
  - Respiratory arrest [Unknown]
  - Burns second degree [Unknown]
  - Respiratory syncytial virus infection [Unknown]
  - Ear infection [Unknown]
  - Laryngeal stenosis [Unknown]
  - Developmental delay [Unknown]
  - Cytogenetic abnormality [Unknown]
